FAERS Safety Report 12679679 (Version 2)
Quarter: 2017Q1

REPORT INFORMATION
  Report Type: Spontaneous
  Country: US (occurrence: US)
  Receive Date: 20160824
  Receipt Date: 20170118
  Transmission Date: 20170428
  Serious: No
  Sender: FDA-Public Use
  Company Number: US-PFIZER INC-2016398555

PATIENT
  Age: 56 Year
  Sex: Female

DRUGS (1)
  1. IBRANCE [Suspect]
     Active Substance: PALBOCICLIB
     Indication: NEOPLASM MALIGNANT
     Dosage: 125 MG, DAILY (WITH FOOD)
     Route: 048
     Dates: start: 201608

REACTIONS (6)
  - Product use issue [Unknown]
  - Fatigue [Unknown]
  - Hordeolum [Unknown]
  - Oral pain [Recovering/Resolving]
  - Weight decreased [Unknown]
  - Cough [Unknown]
